FAERS Safety Report 8084312 (Version 4)
Quarter: 2012Q4

REPORT INFORMATION
  Report Type: 
  Country: CA (occurrence: CA)
  Receive Date: 20110810
  Receipt Date: 20121126
  Transmission Date: 20130627
  Serious: Yes (Other)
  Sender: FDA-Public Use
  Company Number: CA-GLAXOSMITHKLINE-A0922277A

PATIENT
  Age: 61 Year
  Sex: Female
  Weight: 63.6 kg

DRUGS (13)
  1. ADVAIR [Suspect]
     Indication: ASTHMA
     Dosage: 1PUFF Twice per day
     Route: 055
     Dates: start: 2003
  2. VENTOLIN [Suspect]
     Indication: ASTHMA
     Dosage: 2PUFF As required
     Route: 055
  3. SERTRALINE [Concomitant]
     Route: 065
  4. PANTOPRAZOLE [Concomitant]
     Dosage: 40MG Unknown
     Route: 065
  5. LEVOTHYROXINE [Concomitant]
     Dosage: .075MG Unknown
     Route: 065
  6. ZINC [Concomitant]
     Route: 065
  7. BIOTIN [Concomitant]
     Route: 065
  8. CALCIUM [Concomitant]
     Indication: ARTHRALGIA
     Route: 065
  9. VITAMINS [Concomitant]
     Route: 065
  10. B100 COMPLEX [Concomitant]
  11. SYNTHROID [Concomitant]
  12. PREDNISONE [Concomitant]
  13. ANTIBIOTIC [Concomitant]
     Dates: start: 20101225

REACTIONS (27)
  - Thyroid disorder [Unknown]
  - Dyspepsia [Unknown]
  - Panic attack [Unknown]
  - Body height decreased [Unknown]
  - Weight increased [Unknown]
  - Exercise tolerance decreased [Unknown]
  - Nasopharyngitis [Unknown]
  - Malaise [Recovered/Resolved]
  - Nausea [Recovered/Resolved]
  - Vomiting [Recovered/Resolved]
  - Cold sweat [Recovered/Resolved]
  - Extrapulmonary tuberculosis [Recovered/Resolved]
  - Pain [Recovered/Resolved]
  - Pneumonitis [Unknown]
  - Chest X-ray abnormal [Unknown]
  - Fatigue [Unknown]
  - Weight loss poor [Unknown]
  - Influenza [Not Recovered/Not Resolved]
  - Pain [Not Recovered/Not Resolved]
  - Pyrexia [Not Recovered/Not Resolved]
  - Chills [Not Recovered/Not Resolved]
  - Increased upper airway secretion [Not Recovered/Not Resolved]
  - Cough [Not Recovered/Not Resolved]
  - Hyperhidrosis [Unknown]
  - Pulmonary function test decreased [Unknown]
  - Eye disorder [Not Recovered/Not Resolved]
  - Astigmatism [Not Recovered/Not Resolved]
